FAERS Safety Report 5019883-X (Version None)
Quarter: 2006Q2

REPORT INFORMATION
  Report Type: 
  Country: None (occurrence: None)
  Receive Date: 20060605
  Receipt Date: 20060605
  Transmission Date: 20061013
  Serious: Yes (Hospitalization, Other)
  Sender: FDA-Public Use
  Company Number: None

PATIENT
  Age: 20 Year
  Sex: Female
  Weight: 90.7194 kg

DRUGS (3)
  1. EFFEXOR XR [Suspect]
     Indication: ANTIDEPRESSANT THERAPY
     Dosage: 75MG 3XDAY PO
     Route: 048
  2. EFFEXOR XR [Suspect]
     Indication: SERUM SEROTONIN DECREASED
     Dosage: 75MG 3XDAY PO
     Route: 048
  3. EFFEXOR XR [Concomitant]

REACTIONS (7)
  - BALANCE DISORDER [None]
  - DRUG DEPENDENCE [None]
  - DRUG WITHDRAWAL SYNDROME [None]
  - IRRITABILITY [None]
  - NERVOUSNESS [None]
  - PSYCHOMOTOR HYPERACTIVITY [None]
  - SUICIDAL IDEATION [None]
